FAERS Safety Report 10515418 (Version 1)
Quarter: 2014Q3

REPORT INFORMATION
  Report Type: Spontaneous
  Country: US (occurrence: None)
  Receive Date: 20140926
  Receipt Date: 20140926
  Transmission Date: 20150326
  Serious: No
  Sender: FDA-Public Use
  Company Number: 1000070225

PATIENT
  Age: 76 Year
  Sex: Male

DRUGS (7)
  1. ZETIA [Concomitant]
     Active Substance: EZETIMIBE
  2. ATENOLOL. [Concomitant]
     Active Substance: ATENOLOL
  3. CLONIDINE. [Concomitant]
     Active Substance: CLONIDINE
  4. METAMUCIL [Concomitant]
     Active Substance: PLANTAGO SEED
  5. LINZESS [Suspect]
     Active Substance: LINACLOTIDE
     Indication: CONSTIPATION
     Route: 048
     Dates: start: 20140820, end: 20140826
  6. OXYCONTIN(OXYCODONE) HYDROCHLORIDE)(OXYCODONE [Concomitant]
  7. ENDOCET [Concomitant]
     Active Substance: ACETAMINOPHEN\OXYCODONE HYDROCHLORIDE

REACTIONS (1)
  - Drug ineffective [None]

NARRATIVE: CASE EVENT DATE: 20140820
